FAERS Safety Report 4900401-9 (Version None)
Quarter: 2006Q1

REPORT INFORMATION
  Report Type: 
  Country: None (occurrence: None)
  Receive Date: 20060203
  Receipt Date: 20060123
  Transmission Date: 20060701
  Serious: Yes (Hospitalization)
  Sender: FDA-Public Use
  Company Number: ES-JNJFOC-20060105033

PATIENT
  Age: 86 Year
  Sex: Male

DRUGS (11)
  1. HALOPERIDOL [Suspect]
     Indication: DRUG USE FOR UNKNOWN INDICATION
     Route: 058
  2. TIAPRIZAL [Interacting]
     Indication: DRUG USE FOR UNKNOWN INDICATION
     Route: 048
  3. LORAZEPAM [Interacting]
     Indication: DRUG USE FOR UNKNOWN INDICATION
     Route: 048
  4. LUDIOMIL [Interacting]
     Indication: DRUG USE FOR UNKNOWN INDICATION
     Route: 048
  5. SINEMET [Interacting]
     Route: 048
  6. SINEMET [Interacting]
     Indication: DRUG USE FOR UNKNOWN INDICATION
     Dosage: 50MG LEVODOPA/200MG CARBIDOPA
     Route: 048
  7. SOGILEN [Interacting]
     Indication: DRUG USE FOR UNKNOWN INDICATION
     Route: 048
  8. TERMALGIN [Concomitant]
     Route: 048
  9. OMEPRAZOLE [Concomitant]
     Route: 048
  10. NOLOTIL [Concomitant]
     Route: 048
  11. NOLOTIL [Concomitant]
     Route: 048

REACTIONS (2)
  - DRUG INTERACTION [None]
  - TREMOR [None]
